FAERS Safety Report 19188980 (Version 1)
Quarter: 2021Q2

REPORT INFORMATION
  Report Type: Spontaneous
  Country: US (occurrence: US)
  Receive Date: 20210427
  Receipt Date: 20210427
  Transmission Date: 20210717
  Serious: Yes (Other)
  Sender: FDA-Public Use
  Company Number: None

PATIENT
  Age: 67 Year
  Sex: Female
  Weight: 57.56 kg

DRUGS (15)
  1. CLONAZEPAM. [Concomitant]
     Active Substance: CLONAZEPAM
  2. VASCPTA [Concomitant]
  3. TUKYSA [Concomitant]
     Active Substance: TUCATINIB
  4. ONDANSETRON [Concomitant]
     Active Substance: ONDANSETRON
  5. NITROFURANTOIN MONOHY MACO [Concomitant]
  6. GLUCOPHAGE [Concomitant]
     Active Substance: METFORMIN HYDROCHLORIDE
  7. LISINOPRIL. [Concomitant]
     Active Substance: LISINOPRIL
  8. LORATADINE. [Concomitant]
     Active Substance: LORATADINE
  9. CHOLECALCIFEROL [Concomitant]
     Active Substance: CHOLECALCIFEROL
  10. IMODIUM [Concomitant]
     Active Substance: LOPERAMIDE HYDROCHLORIDE
  11. CAPECITABINE. [Suspect]
     Active Substance: CAPECITABINE
     Indication: BREAST CANCER
     Route: 048
     Dates: start: 20201218
  12. PROCHLORPERAZINE. [Concomitant]
     Active Substance: PROCHLORPERAZINE
  13. TYLENOL [Concomitant]
     Active Substance: ACETAMINOPHEN
  14. C Q?10 [Concomitant]
  15. PEPCID [Concomitant]
     Active Substance: FAMOTIDINE

REACTIONS (2)
  - Skin burning sensation [None]
  - Oral discomfort [None]

NARRATIVE: CASE EVENT DATE: 20210427
